FAERS Safety Report 7277775-X (Version None)
Quarter: 2011Q1

REPORT INFORMATION
  Report Type: 
  Country: None (occurrence: None)
  Receive Date: 20110207
  Receipt Date: 20100802
  Transmission Date: 20110831
  Serious: No
  Sender: FDA-Public Use
  Company Number: A0873442A

PATIENT
  Sex: Female

DRUGS (2)
  1. LASER TREATMENT [Concomitant]
  2. OLUX E FOAM (EMULSION AEROSOL FOAM) [Suspect]
     Route: 061
     Dates: end: 20100729

REACTIONS (4)
  - THYROID DISORDER [None]
  - HYPOTENSION [None]
  - CARBON DIOXIDE ABNORMAL [None]
  - DRUG ADMINISTRATION ERROR [None]
